FAERS Safety Report 23344031 (Version 1)
Quarter: 2023Q4

REPORT INFORMATION
  Report Type: Report from Study
  Country: US (occurrence: US)
  Receive Date: 20231227
  Receipt Date: 20231227
  Transmission Date: 20240110
  Serious: Yes (Other)
  Sender: FDA-Public Use
  Company Number: US-ABBVIE-5551526

PATIENT
  Age: 66 Year
  Sex: Male

DRUGS (1)
  1. IMBRUVICA [Suspect]
     Active Substance: IBRUTINIB
     Indication: Mantle cell lymphoma
     Route: 048
     Dates: start: 20220713, end: 202312

REACTIONS (3)
  - Metastatic malignant melanoma [Not Recovered/Not Resolved]
  - Hospice care [Unknown]
  - Hypersomnia [Not Recovered/Not Resolved]

NARRATIVE: CASE EVENT DATE: 20231101
